FAERS Safety Report 17151808 (Version 1)
Quarter: 2019Q4

REPORT INFORMATION
  Report Type: Spontaneous
  Country: US (occurrence: US)
  Receive Date: 20191212
  Receipt Date: 20191212
  Transmission Date: 20200122
  Serious: Yes (Disabling)
  Sender: FDA-Public Use
  Company Number: None

PATIENT
  Age: 70 Year
  Sex: Female
  Weight: 65.25 kg

DRUGS (1)
  1. TIMOLOL MALEATE STERILE OPTHALAMALIC SOLUTION O.5% [Suspect]
     Active Substance: TIMOLOL MALEATE
     Indication: GLAUCOMA
     Dosage: ?          QUANTITY:1 DROP(S);?
     Route: 047

REACTIONS (7)
  - Blepharitis [None]
  - Manufacturing materials issue [None]
  - Eye pruritus [None]
  - Rhinorrhoea [None]
  - Eye inflammation [None]
  - Swelling of eyelid [None]
  - Product quality issue [None]

NARRATIVE: CASE EVENT DATE: 20191118
